FAERS Safety Report 4868628-2 (Version None)
Quarter: 2005Q4

REPORT INFORMATION
  Report Type: 
  Country: None (occurrence: None)
  Receive Date: 20051223
  Receipt Date: 20051212
  Transmission Date: 20060501
  Serious: Yes (Other)
  Sender: FDA-Public Use
  Company Number: 2005090498

PATIENT
  Age: 78 Year
  Sex: Male

DRUGS (4)
  1. VIAGRA [Suspect]
     Indication: ERECTILE DYSFUNCTION
     Dosage: ORAL
     Route: 048
     Dates: start: 20000101
  2. AUGMENTIN '125' [Suspect]
     Indication: ILL-DEFINED DISORDER
  3. COUMADIN [Concomitant]
  4. GLUCOPHAGE [Concomitant]

REACTIONS (6)
  - CYANOPSIA [None]
  - DIPLOPIA [None]
  - SCLERAL HAEMORRHAGE [None]
  - VISION BLURRED [None]
  - VISUAL DISTURBANCE [None]
  - VISUAL FIELD DEFECT [None]
